FAERS Safety Report 24828015 (Version 1)
Quarter: 2025Q1

REPORT INFORMATION
  Report Type: Spontaneous
  Country: US (occurrence: US)
  Receive Date: 20250109
  Receipt Date: 20250109
  Transmission Date: 20250408
  Serious: No
  Sender: BIOMARIN
  Company Number: US-BIOMARINAP-US-2025-162967

PATIENT

DRUGS (1)
  1. VOXZOGO [Suspect]
     Active Substance: VOSORITIDE
     Indication: Product used for unknown indication
     Route: 058

REACTIONS (2)
  - Injection site pain [Recovering/Resolving]
  - Injection site haemorrhage [Recovering/Resolving]
